FAERS Safety Report 10285208 (Version 7)
Quarter: 2015Q1

REPORT INFORMATION
  Report Type: Report from Study
  Country: US (occurrence: US)
  Receive Date: 20140708
  Receipt Date: 20150226
  Transmission Date: 20150720
  Serious: Yes (Other)
  Sender: FDA-Public Use
  Company Number: US-SA-2014SA065204

PATIENT
  Age: 49 Year
  Sex: Female

DRUGS (9)
  1. VESICARE [Concomitant]
     Active Substance: SOLIFENACIN SUCCINATE
  2. OXYBUTYNIN [Concomitant]
     Active Substance: OXYBUTYNIN
     Indication: BLADDER DISORDER
  3. AUBAGIO [Suspect]
     Active Substance: TERIFLUNOMIDE
     Indication: MULTIPLE SCLEROSIS
     Route: 048
     Dates: start: 20140922
  4. GABAPENTIN. [Concomitant]
     Active Substance: GABAPENTIN
     Indication: MULTIPLE SCLEROSIS
     Dates: start: 2005
  5. AMPYRA [Concomitant]
     Active Substance: DALFAMPRIDINE
     Indication: MULTIPLE SCLEROSIS
     Dates: start: 2011
  6. AUBAGIO [Suspect]
     Active Substance: TERIFLUNOMIDE
     Indication: MULTIPLE SCLEROSIS
     Route: 048
  7. BACLOFEN. [Concomitant]
     Active Substance: BACLOFEN
     Indication: MULTIPLE SCLEROSIS
     Dates: start: 1997
  8. MECLIZINE [Concomitant]
     Active Substance: MECLIZINE\MECLIZINE HYDROCHLORIDE
     Indication: MULTIPLE SCLEROSIS
     Dates: start: 2005
  9. AUBAGIO [Suspect]
     Active Substance: TERIFLUNOMIDE
     Indication: MULTIPLE SCLEROSIS
     Route: 048
     Dates: start: 20140427, end: 20140921

REACTIONS (20)
  - Peripheral swelling [Recovered/Resolved]
  - Gait disturbance [Recovering/Resolving]
  - Depression [Unknown]
  - Drug dose omission [Unknown]
  - Abasia [Unknown]
  - Joint stiffness [Recovering/Resolving]
  - Fall [Unknown]
  - Memory impairment [Unknown]
  - Weight decreased [Unknown]
  - Feeling abnormal [Unknown]
  - Myalgia [Recovered/Resolved]
  - Somnolence [Unknown]
  - Eating disorder [Unknown]
  - Malaise [Unknown]
  - Pain in extremity [Unknown]
  - Confusional state [Unknown]
  - Diarrhoea [Unknown]
  - Nasopharyngitis [Unknown]
  - Dizziness [Unknown]
  - Alopecia [Recovered/Resolved]

NARRATIVE: CASE EVENT DATE: 20140525
